FAERS Safety Report 16164959 (Version 3)
Quarter: 2019Q2

REPORT INFORMATION
  Report Type: Spontaneous
  Country: GB (occurrence: GB)
  Receive Date: 20190405
  Receipt Date: 20190621
  Transmission Date: 20190711
  Serious: Yes (Death)
  Sender: FDA-Public Use
  Company Number: GB-MYLANLABS-2019M1031430

PATIENT
  Age: 31 Year
  Sex: Female

DRUGS (18)
  1. VEDOLIZUMAB [Suspect]
     Active Substance: VEDOLIZUMAB
     Indication: INFLAMMATORY BOWEL DISEASE
     Dosage: STOPPED BY 32 WEEKS PREGNANT
     Route: 042
     Dates: start: 201604, end: 201810
  2. MERCAPTOPURINE. [Suspect]
     Active Substance: MERCAPTOPURINE
     Indication: INFLAMMATORY BOWEL DISEASE
     Dosage: 50 MILLIGRAM
     Route: 048
     Dates: start: 201306, end: 201404
  3. CYCLIZINE [Concomitant]
     Active Substance: CYCLIZINE
     Dosage: AT 33 WEEKS
  4. SERTRALINE [Concomitant]
     Active Substance: SERTRALINE HYDROCHLORIDE
     Dosage: FROM EARLY PREGNANCY
  5. AZATHIOPRINE. [Suspect]
     Active Substance: AZATHIOPRINE
     Indication: INFLAMMATORY BOWEL DISEASE
     Dosage: 50 MILLIGRAM
     Route: 048
     Dates: start: 201404, end: 201408
  6. PROCHLORPERAZINE. [Concomitant]
     Active Substance: PROCHLORPERAZINE
     Dosage: FROM EARLY PREGNANCY
  7. BETAMETHASONE. [Concomitant]
     Active Substance: BETAMETHASONE
     Dosage: 2 DOSAGE FORM AT 33 WEEKS PREGNANT
  8. RANITIDINE. [Concomitant]
     Active Substance: RANITIDINE
     Dosage: AT 33 WEEKS
  9. INFLIXIMAB [Suspect]
     Active Substance: INFLIXIMAB
     Indication: INFLAMMATORY BOWEL DISEASE
     Dosage: UNK
     Route: 042
     Dates: start: 200703, end: 200710
  10. ADALIMUMAB [Suspect]
     Active Substance: ADALIMUMAB
     Indication: INFLAMMATORY BOWEL DISEASE
     Dosage: 40 MILLIGRAM
     Route: 058
     Dates: start: 200904, end: 200910
  11. VITAMINS NOS [Concomitant]
     Active Substance: VITAMINS
     Dosage: FROM EARLY PREGNANCY
  12. AMITRIPTYLINE [Concomitant]
     Active Substance: AMITRIPTYLINE
     Dosage: STOPPED BY 32 WEEKS PREGNANT
     Dates: start: 2018
  13. PARACETAMOL [Concomitant]
     Active Substance: ACETAMINOPHEN
     Dosage: FROM EARLY PREGNANCY
  14. PREDNISOLONE. [Suspect]
     Active Substance: PREDNISOLONE
     Indication: INFLAMMATORY BOWEL DISEASE
     Dosage: UNK (5-40MG)
     Route: 048
     Dates: start: 2008, end: 2018
  15. PANTOPRAZOLE [Concomitant]
     Active Substance: PANTOPRAZOLE
     Dosage: FROM EARLY PREGNANCY
  16. ESOMEPRAZOLE. [Concomitant]
     Active Substance: ESOMEPRAZOLE MAGNESIUM
     Dosage: AT 33 WEEKS
  17. CICLOSPORIN [Suspect]
     Active Substance: CYCLOSPORINE
     Indication: INFLAMMATORY BOWEL DISEASE
     Dosage: 100 MILLIGRAM
     Route: 048
     Dates: start: 200810, end: 200904
  18. METHOTREXATE. [Suspect]
     Active Substance: METHOTREXATE
     Indication: INFLAMMATORY BOWEL DISEASE
     Dosage: 25 MILLIGRAM
     Route: 048
     Dates: start: 200910, end: 201010

REACTIONS (2)
  - Maternal exposure during pregnancy [Recovered/Resolved]
  - Rectal cancer metastatic [Fatal]

NARRATIVE: CASE EVENT DATE: 20180809
